FAERS Safety Report 5128418-2 (Version None)
Quarter: 2006Q4

REPORT INFORMATION
  Report Type: 
  Country: None (occurrence: None)
  Receive Date: 20061017
  Receipt Date: 20051129
  Transmission Date: 20070319
  Serious: Yes (Other)
  Sender: FDA-Public Use
  Company Number: BR-ROCHE-427025

PATIENT
  Age: 24 Year
  Sex: Female
  Weight: 55 kg

DRUGS (3)
  1. ROACUTAN [Suspect]
     Indication: ACNE
     Route: 048
     Dates: start: 20050515, end: 20050915
  2. CONTRACEPTIVE [Concomitant]
     Indication: CONTRACEPTION
     Route: 048
     Dates: start: 19990615, end: 20051015
  3. FOLIC ACID [Concomitant]
     Route: 048
     Dates: start: 20051115

REACTIONS (4)
  - DRUG EXPOSURE DURING PREGNANCY [None]
  - NO ADVERSE EFFECT [None]
  - PREGNANCY [None]
  - TREATMENT NONCOMPLIANCE [None]
